FAERS Safety Report 9186481 (Version 2)
Quarter: 2013Q2

REPORT INFORMATION
  Report Type: Spontaneous
  Country: TW (occurrence: TW)
  Receive Date: 20130325
  Receipt Date: 20130423
  Transmission Date: 20140414
  Serious: Yes (Death, Other)
  Sender: FDA-Public Use
  Company Number: TW-CELGENEUS-153-50794-13031893

PATIENT
  Age: 73 Year
  Sex: Male

DRUGS (1)
  1. VIDAZA [Suspect]
     Indication: ACUTE MYELOID LEUKAEMIA
     Route: 065
     Dates: start: 201002

REACTIONS (4)
  - Febrile neutropenia [Fatal]
  - Septic shock [Fatal]
  - Sinusitis aspergillus [Recovered/Resolved]
  - Chloroma [Not Recovered/Not Resolved]
